FAERS Safety Report 20651077 (Version 1)
Quarter: 2022Q1

REPORT INFORMATION
  Report Type: Report from Study
  Country: US (occurrence: US)
  Receive Date: 20220329
  Receipt Date: 20220329
  Transmission Date: 20220423
  Serious: Yes (Death, Hospitalization)
  Sender: FDA-Public Use
  Company Number: US-TEVA-2022-US-2022280

PATIENT
  Age: 57 Year
  Sex: Male
  Weight: 90.2 kg

DRUGS (13)
  1. PREDNISONE [Suspect]
     Active Substance: PREDNISONE
     Indication: Diffuse large B-cell lymphoma
     Dosage: WEEKLY
     Route: 048
     Dates: start: 20210924, end: 20210926
  2. PREDNISONE [Suspect]
     Active Substance: PREDNISONE
     Dosage: WEEKLY
     Route: 048
     Dates: start: 20211001, end: 20211001
  3. PREDNISONE [Suspect]
     Active Substance: PREDNISONE
     Dosage: WEEKLY
     Route: 048
     Dates: start: 20211007, end: 20211008
  4. VINCRISTINE [Suspect]
     Active Substance: VINCRISTINE
     Indication: Diffuse large B-cell lymphoma
     Route: 042
     Dates: start: 20210924, end: 20211217
  5. DOXORUBICIN [Suspect]
     Active Substance: DOXORUBICIN
     Indication: Diffuse large B-cell lymphoma
     Route: 042
     Dates: start: 20210924, end: 20211212
  6. PREDNISOLONE [Suspect]
     Active Substance: PREDNISOLONE
     Dates: end: 20211008
  7. CYCLOPHOSPHAMIDE [Suspect]
     Active Substance: CYCLOPHOSPHAMIDE
     Indication: Diffuse large B-cell lymphoma
     Route: 042
     Dates: start: 20210924, end: 20211217
  8. RITUXIMAB [Suspect]
     Active Substance: RITUXIMAB
     Indication: Diffuse large B-cell lymphoma
     Route: 042
     Dates: start: 20210924, end: 20211217
  9. EPCORITAMAB [Suspect]
     Active Substance: EPCORITAMAB
     Indication: Diffuse large B-cell lymphoma
     Route: 058
     Dates: start: 20210924, end: 20210926
  10. EPCORITAMAB [Suspect]
     Active Substance: EPCORITAMAB
     Route: 058
     Dates: start: 20211001, end: 20211001
  11. EPCORITAMAB [Suspect]
     Active Substance: EPCORITAMAB
     Dosage: WEEKLY
     Route: 058
     Dates: start: 20211008, end: 20211217
  12. DIPHENHYDRAMINE [Concomitant]
     Active Substance: DIPHENHYDRAMINE
     Route: 065
     Dates: start: 20211217, end: 20211217
  13. ACETAMINOPHEN [Concomitant]
     Active Substance: ACETAMINOPHEN
     Route: 065
     Dates: start: 20211217, end: 20211217

REACTIONS (1)
  - COVID-19 [Fatal]

NARRATIVE: CASE EVENT DATE: 20220115
